FAERS Safety Report 15858403 (Version 2)
Quarter: 2019Q1

REPORT INFORMATION
  Report Type: Spontaneous
  Country: US (occurrence: US)
  Receive Date: 20190123
  Receipt Date: 20190131
  Transmission Date: 20190417
  Serious: Yes (Other)
  Sender: FDA-Public Use
  Company Number: US-PFIZER INC-2018515088

PATIENT
  Age: 65 Year
  Sex: Male
  Weight: 98.86 kg

DRUGS (1)
  1. DILTIAZEM HCL [Suspect]
     Active Substance: DILTIAZEM HYDROCHLORIDE
     Dosage: 500 UG, 2X/DAY

REACTIONS (1)
  - Bradycardia [Unknown]
